FAERS Safety Report 4382336-6 (Version None)
Quarter: 2004Q2

REPORT INFORMATION
  Report Type: 
  Country: None (occurrence: None)
  Receive Date: 20040616
  Receipt Date: 20040609
  Transmission Date: 20050107
  Serious: Yes (Life-Threatening)
  Sender: FDA-Public Use
  Company Number: D01200402087

PATIENT
  Age: 70 Year
  Sex: Male

DRUGS (5)
  1. (FONDAPARINUX) - SOLUTION [Suspect]
     Indication: MYOCARDIAL INFARCTION
     Dosage: 2.5 MG QD SUBCUTANEOUS
     Route: 058
     Dates: start: 20031106, end: 20031111
  2. ASPIRIN [Concomitant]
  3. CLOPIDOGREL BISULFATE [Concomitant]
  4. BETA-BLOCKER [Concomitant]
  5. ACE INHIBITOR [Concomitant]

REACTIONS (4)
  - CATHETER RELATED COMPLICATION [None]
  - CORONARY ARTERY STENOSIS [None]
  - CORONARY ARTERY THROMBOSIS [None]
  - PAIN [None]
